FAERS Safety Report 5507285-9 (Version None)
Quarter: 2007Q4

REPORT INFORMATION
  Report Type: 
  Country: None (occurrence: None)
  Receive Date: 20071106
  Receipt Date: 20071102
  Transmission Date: 20080405
  Serious: Yes (Other)
  Sender: FDA-Public Use
  Company Number: PHEH2007US12045

PATIENT
  Age: 79 Year
  Sex: Male

DRUGS (3)
  1. TEKTURNA [Suspect]
     Dosage: 150 MG, QD
     Route: 048
  2. TEKTURNA [Suspect]
     Dosage: 150 MG, QD
     Route: 048
  3. LIPITOR [Suspect]
     Dosage: 20 MG, QD
     Route: 048
     Dates: end: 20070801

REACTIONS (3)
  - ALANINE AMINOTRANSFERASE INCREASED [None]
  - ASPARTATE AMINOTRANSFERASE INCREASED [None]
  - HEPATIC ENZYME INCREASED [None]
